FAERS Safety Report 19122949 (Version 1)
Quarter: 2021Q2

REPORT INFORMATION
  Report Type: Report from Study
  Country: US (occurrence: US)
  Receive Date: 20210412
  Receipt Date: 20210412
  Transmission Date: 20210717
  Serious: Yes (Other)
  Sender: FDA-Public Use
  Company Number: US-UCBSA-2020027479

PATIENT
  Age: 44 Year
  Sex: Female

DRUGS (1)
  1. LEVETIRACETAM. [Suspect]
     Active Substance: LEVETIRACETAM
     Indication: SEIZURE
     Dosage: 1500 MILLIGRAM, 2X/DAY (BID)
     Dates: start: 20161122, end: 202007

REACTIONS (7)
  - Nephrolithiasis [Unknown]
  - Off label use [Unknown]
  - Irritability [Unknown]
  - Crying [Unknown]
  - Tremor [Not Recovered/Not Resolved]
  - Emotional disorder [Not Recovered/Not Resolved]
  - Urinary tract infection [Unknown]

NARRATIVE: CASE EVENT DATE: 20161122
